FAERS Safety Report 5835266-4 (Version None)
Quarter: 2008Q3

REPORT INFORMATION
  Report Type: 
  Country: None (occurrence: None)
  Receive Date: 20080806
  Receipt Date: 20080728
  Transmission Date: 20090109
  Serious: Yes (Other)
  Sender: FDA-Public Use
  Company Number: TR-TEVA-175143ISR

PATIENT
  Age: 16 Year
  Sex: Male

DRUGS (4)
  1. METHOTREXATE [Suspect]
  2. CYTARABINE [Suspect]
  3. CEFEPIME [Suspect]
  4. AMIKACIN [Suspect]

REACTIONS (2)
  - BRONCHOPULMONARY ASPERGILLOSIS [None]
  - HEPATOSPLENIC CANDIDIASIS [None]
